FAERS Safety Report 9526473 (Version 1)
Quarter: 2013Q1

REPORT INFORMATION
  Report Type: Spontaneous
  Country: US (occurrence: None)
  Receive Date: 20130305
  Receipt Date: 20130305
  Transmission Date: 20140127
  Serious: Yes (Other)
  Sender: FDA-Public Use
  Company Number: 163-21880-12033479

PATIENT
  Age: 75 Year
  Sex: Female

DRUGS (8)
  1. REVLIMID [Suspect]
     Indication: PLASMA CELL MYELOMA
     Route: 048
     Dates: start: 201004, end: 201006
  2. ASA (ACETYLSALICYLIC ACID) [Concomitant]
  3. LEVOTHYROXINE (LEVOTHYROXINE) [Concomitant]
  4. CITALOPRAM (CITALOPRAM) [Concomitant]
  5. METHADONE (METHADONE) [Concomitant]
  6. FENTANYL (FENTANYL) [Concomitant]
  7. HYDROMORPHONE (HYDROMORPHONE) [Concomitant]
  8. VITAMIN D (ERGOCALCIFEROL) [Concomitant]

REACTIONS (2)
  - Fatigue [None]
  - Depression [None]
